FAERS Safety Report 16029285 (Version 1)
Quarter: 2019Q2

REPORT INFORMATION
  Report Type: Spontaneous
  Country: US (occurrence: US)
  Receive Date: 20190302
  Receipt Date: 20190302
  Transmission Date: 20190711
  Serious: Yes (Disabling)
  Sender: FDA-Public Use
  Company Number: None

PATIENT
  Age: 22 Year
  Sex: Female

DRUGS (1)
  1. LUPRON DEPOT [Suspect]
     Active Substance: LEUPROLIDE ACETATE
     Indication: ENDOMETRIOSIS
     Dosage: ?          OTHER FREQUENCY:ONCE A MONTH;OTHER ROUTE:INJECTION INTO THE HIP?

REACTIONS (8)
  - Irritable bowel syndrome [None]
  - Dyspepsia [None]
  - Fibromyalgia [None]
  - Pain [None]
  - Alopecia [None]
  - Cystitis interstitial [None]
  - Fatigue [None]
  - Weight increased [None]
